FAERS Safety Report 17747099 (Version 1)
Quarter: 2020Q2

REPORT INFORMATION
  Report Type: Report from Study
  Country: BR (occurrence: BR)
  Receive Date: 20200505
  Receipt Date: 20200505
  Transmission Date: 20200714
  Serious: Yes (Other)
  Sender: FDA-Public Use
  Company Number: NVSC2020BR119149

PATIENT
  Sex: Female

DRUGS (3)
  1. ENTRESTO [Concomitant]
     Active Substance: SACUBITRIL\VALSARTAN
     Indication: PRODUCT USED FOR UNKNOWN INDICATION
     Dosage: 97/103 MG, 2 YEARS AGO
     Route: 065
  2. CAPTOPRIL. [Suspect]
     Active Substance: CAPTOPRIL
     Indication: PRODUCT USED FOR UNKNOWN INDICATION
     Dosage: UNK
     Route: 065
  3. ENTRESTO [Concomitant]
     Active Substance: SACUBITRIL\VALSARTAN
     Dosage: 26 OT, 2 YEARS AGO
     Route: 065

REACTIONS (10)
  - Asphyxia [Unknown]
  - Secretion discharge [Recovered/Resolved]
  - Fall [Recovered/Resolved]
  - Dizziness [Recovered/Resolved]
  - Dysphagia [Unknown]
  - Pharyngeal swelling [Unknown]
  - Throat clearing [Recovered/Resolved]
  - Swollen tongue [Unknown]
  - Gastrooesophageal reflux disease [Unknown]
  - Choking [Unknown]
